FAERS Safety Report 23068330 (Version 1)
Quarter: 2023Q4

REPORT INFORMATION
  Report Type: Spontaneous
  Country: US (occurrence: None)
  Receive Date: 20231013
  Receipt Date: 20231013
  Transmission Date: 20240109
  Serious: Yes (Other)
  Sender: FDA-Public Use
  Company Number: None

PATIENT
  Age: 61 Year
  Sex: Female
  Weight: 42.75 kg

DRUGS (6)
  1. AVASTIN [Suspect]
     Active Substance: BEVACIZUMAB
     Indication: Diabetic retinopathy
  2. INSULIN NOS [Concomitant]
     Active Substance: INSULIN NOS
  3. OmniPod 5 [Concomitant]
  4. LEVOTHYROXINE [Concomitant]
     Active Substance: LEVOTHYROXINE
  5. CITALOPRAM [Concomitant]
     Active Substance: CITALOPRAM HYDROBROMIDE
  6. Dexcom G6 [Concomitant]

REACTIONS (6)
  - Eye pain [None]
  - Visual impairment [None]
  - Lacrimation increased [None]
  - Eye operation [None]
  - Blindness unilateral [None]
  - Staphylococcal infection [None]

NARRATIVE: CASE EVENT DATE: 20230120
